FAERS Safety Report 5648545-0 (Version None)
Quarter: 2008Q1

REPORT INFORMATION
  Report Type: 
  Country: None (occurrence: None)
  Receive Date: 20080303
  Receipt Date: 20080303
  Transmission Date: 20080703
  Serious: Yes (Hospitalization)
  Sender: FDA-Public Use
  Company Number: None

PATIENT
  Sex: Male
  Weight: 85 kg

DRUGS (9)
  1. CYTARABINE [Suspect]
     Dosage: 4240 MG
  2. DEXAMETHASONE TAB [Suspect]
     Dosage: 100 MG
  3. ETOPOSIDE [Suspect]
     Dosage: 240 MG
  4. IFOSFAMIDE [Suspect]
     Dosage: 8500 MG
  5. LEUCOVORIN CALCIUM [Suspect]
     Dosage: 175 MG
  6. MESNA [Suspect]
     Dosage: 6375 MG
  7. METHOTREXATE [Suspect]
     Dosage: 3180 MG
  8. RITUXIMAB (MOAB C2B8 ANTI CD20, CHIMERIC) [Suspect]
     Dosage: 800 MG
  9. VINCRISTINE SULFATE [Suspect]
     Dosage: 2 MG

REACTIONS (27)
  - ASTHENIA [None]
  - AXILLARY PAIN [None]
  - BLOOD CULTURE POSITIVE [None]
  - CANDIDIASIS [None]
  - CATHETER SEPSIS [None]
  - CELLULITIS STAPHYLOCOCCAL [None]
  - COUGH [None]
  - CULTURE POSITIVE [None]
  - ESCHERICHIA INFECTION [None]
  - FATIGUE [None]
  - HAEMOGLOBIN DECREASED [None]
  - HEART RATE INCREASED [None]
  - HIDRADENITIS [None]
  - HYPERHIDROSIS [None]
  - HYPOTENSION [None]
  - HYPOXIA [None]
  - INAPPROPRIATE SCHEDULE OF DRUG ADMINISTRATION [None]
  - KLEBSIELLA INFECTION [None]
  - LUNG INFECTION [None]
  - LYMPHADENOPATHY [None]
  - NEUTROPHIL COUNT DECREASED [None]
  - PLATELET COUNT DECREASED [None]
  - PURULENCE [None]
  - PYREXIA [None]
  - SPUTUM CULTURE POSITIVE [None]
  - STAPHYLOCOCCAL INFECTION [None]
  - TREATMENT NONCOMPLIANCE [None]
